FAERS Safety Report 24611628 (Version 2)
Quarter: 2024Q4

REPORT INFORMATION
  Report Type: Spontaneous
  Country: PL (occurrence: PL)
  Receive Date: 20241113
  Receipt Date: 20241204
  Transmission Date: 20250115
  Serious: Yes (Hospitalization, Other)
  Sender: SANDOZ
  Company Number: PL-ABBVIE-5987690

PATIENT
  Age: 35 Year
  Sex: Male

DRUGS (2)
  1. ADALIMUMAB [Suspect]
     Active Substance: ADALIMUMAB
     Indication: Psoriasis
     Dosage: 12TH WEEK OF TREATMENT
     Route: 058
  2. ADALIMUMAB [Suspect]
     Active Substance: ADALIMUMAB
     Dosage: UNK
     Route: 065

REACTIONS (8)
  - Glaucomatocyclitic crises [Recovering/Resolving]
  - Meningitis aseptic [Recovered/Resolved]
  - Fibrin D dimer increased [Unknown]
  - CSF cell count increased [Recovered/Resolved]
  - C-reactive protein increased [Unknown]
  - Eye pain [Unknown]
  - Headache [Unknown]
  - Pyrexia [Unknown]
